FAERS Safety Report 6642740-X (Version None)
Quarter: 2010Q1

REPORT INFORMATION
  Report Type: 
  Country: None (occurrence: None)
  Receive Date: 20100319
  Receipt Date: 20100309
  Transmission Date: 20100710
  Serious: Yes (Other)
  Sender: FDA-Public Use
  Company Number: GB-PFIZER INC-2010018894

PATIENT
  Age: 35 Year
  Sex: Male

DRUGS (5)
  1. CHAMPIX [Suspect]
     Dosage: 1 MG, 2X/DAY
  2. ATORVASTATIN CALCIUM [Suspect]
  3. PERINDOPRIL [Suspect]
  4. BISOPROLOL [Suspect]
     Dosage: UNK
  5. CLOPIDOGREL [Suspect]

REACTIONS (1)
  - BLOOD PRESSURE INCREASED [None]
